FAERS Safety Report 7575274-9 (Version None)
Quarter: 2011Q2

REPORT INFORMATION
  Report Type: 
  Country: None (occurrence: None)
  Receive Date: 20110627
  Receipt Date: 20110622
  Transmission Date: 20111010
  Serious: Yes (Other)
  Sender: FDA-Public Use
  Company Number: US-PFIZER INC-2011139275

PATIENT
  Sex: Male

DRUGS (5)
  1. DILTIAZEM [Concomitant]
     Dosage: 180 MG, 1X/DAY
  2. LYRICA [Suspect]
     Indication: NEUROPATHY PERIPHERAL
  3. WARFARIN [Concomitant]
     Dosage: UNK
  4. LYRICA [Suspect]
     Indication: PAIN
     Dosage: 100 MG, 2X/DAY
     Route: 048
     Dates: start: 20100101
  5. LASIX [Concomitant]
     Dosage: 40 MG, 1X/DAY

REACTIONS (4)
  - DIZZINESS [None]
  - FALL [None]
  - SPINAL NERVE STIMULATOR IMPLANTATION [None]
  - BALANCE DISORDER [None]
